FAERS Safety Report 14075190 (Version 15)
Quarter: 2019Q2

REPORT INFORMATION
  Report Type: Spontaneous
  Country: US (occurrence: US)
  Receive Date: 20171011
  Receipt Date: 20190516
  Transmission Date: 20190711
  Serious: Yes (Hospitalization)
  Sender: FDA-Public Use
  Company Number: US-ACTELION-A-NJ2017-160832

PATIENT
  Age: 71 Year
  Sex: Female
  Weight: 90.7 kg

DRUGS (5)
  1. OPSUMIT [Suspect]
     Active Substance: MACITENTAN
     Indication: PULMONARY ARTERIAL HYPERTENSION
     Dosage: 10 MG, QD
     Route: 048
  2. BOOST [Concomitant]
     Active Substance: DIETARY SUPPLEMENT
  3. ELIQUIS [Concomitant]
     Active Substance: APIXABAN
  4. ORENITRAM [Suspect]
     Active Substance: TREPROSTINIL
     Indication: PRODUCT USED FOR UNKNOWN INDICATION
     Dosage: 0.625 MG, BID
     Route: 065
  5. ORENITRAM [Suspect]
     Active Substance: TREPROSTINIL
     Dosage: 1.0 UNK, UNK
     Route: 065
     Dates: end: 20190503

REACTIONS (23)
  - Gait inability [Unknown]
  - Pain in extremity [Unknown]
  - Dyspnoea [Unknown]
  - Nausea [Unknown]
  - Oedema [Unknown]
  - Nasopharyngitis [Unknown]
  - Diarrhoea [Unknown]
  - Asthenia [Unknown]
  - Cardiac disorder [Unknown]
  - Fatigue [Unknown]
  - Diverticulitis [Recovering/Resolving]
  - Clostridium difficile infection [Recovering/Resolving]
  - Headache [Unknown]
  - Abdominal pain upper [Recovering/Resolving]
  - Dyspnoea exertional [Unknown]
  - Hospitalisation [Unknown]
  - Vomiting [Unknown]
  - Alopecia [Unknown]
  - Palpitations [Unknown]
  - Gastrointestinal disorder [Recovering/Resolving]
  - Decreased appetite [Unknown]
  - Muscular weakness [Unknown]
  - Chest pain [Unknown]

NARRATIVE: CASE EVENT DATE: 20171004
